FAERS Safety Report 9214992 (Version 1)
Quarter: 2013Q2

REPORT INFORMATION
  Report Type: Spontaneous
  Country: FR (occurrence: FR)
  Receive Date: 20130405
  Receipt Date: 20130405
  Transmission Date: 20140414
  Serious: Yes (Other)
  Sender: FDA-Public Use
  Company Number: PHHY2013FR032094

PATIENT
  Sex: Female

DRUGS (3)
  1. OMEPRAZOLE [Suspect]
     Indication: PROPHYLAXIS AGAINST GASTROINTESTINAL ULCER
     Dosage: 20 MG, DAILY
     Route: 048
     Dates: start: 20050401
  2. PLAVIX [Interacting]
     Indication: STENT PLACEMENT
  3. KARDEGIC [Concomitant]

REACTIONS (4)
  - Metaplasia [Unknown]
  - Haematochezia [Unknown]
  - Drug interaction [Unknown]
  - Gastritis atrophic [None]
